FAERS Safety Report 25372531 (Version 1)
Quarter: 2025Q2

REPORT INFORMATION
  Report Type: Report from Study
  Country: US (occurrence: US)
  Receive Date: 20250529
  Receipt Date: 20250529
  Transmission Date: 20250717
  Serious: No
  Sender: ACADIA PHARMACEUTICALS
  Company Number: US-ACADIA PHARMACEUTICALS INC.-ACA-2025-PIM-006263

PATIENT
  Sex: Male

DRUGS (19)
  1. NUPLAZID [Suspect]
     Active Substance: PIMAVANSERIN TARTRATE
     Indication: Parkinson^s disease
     Dosage: 34 MILLIGRAM, QD
     Route: 048
  2. NUPLAZID [Suspect]
     Active Substance: PIMAVANSERIN TARTRATE
     Indication: Hallucination
  3. NUPLAZID [Suspect]
     Active Substance: PIMAVANSERIN TARTRATE
     Indication: Delusion
  4. CARBIDOPA\LEVODOPA [Concomitant]
     Active Substance: CARBIDOPA\LEVODOPA
  5. CLONAZEPAM [Concomitant]
     Active Substance: CLONAZEPAM
  6. CREATINE [Concomitant]
     Active Substance: CREATINE
  7. DEPLIN [CALCIUM LEVOMEFOLATE] [Concomitant]
  8. ESCITALOPRAM [Concomitant]
     Active Substance: ESCITALOPRAM OXALATE
  9. EZETIMIBE [Concomitant]
     Active Substance: EZETIMIBE
  10. FISH OIL [Concomitant]
     Active Substance: FISH OIL
  11. GLUCOSAMINE [Concomitant]
     Active Substance: GLUCOSAMINE
  12. GOCOVRI [Concomitant]
     Active Substance: AMANTADINE
  13. MAGNESIUM [Concomitant]
     Active Substance: MAGNESIUM
  14. MELATONIN [Concomitant]
     Active Substance: MELATONIN
  15. MULTIVIT [VITAMINS NOS] [Concomitant]
  16. NOURIANZ [Concomitant]
     Active Substance: ISTRADEFYLLINE
  17. VITAMIN B12 [Concomitant]
     Active Substance: CYANOCOBALAMIN
  18. ZYRTEC [Concomitant]
     Active Substance: CETIRIZINE HYDROCHLORIDE
  19. TERAZOSIN HYDROCHLORIDE [Concomitant]
     Active Substance: TERAZOSIN HYDROCHLORIDE

REACTIONS (1)
  - Confusional state [Unknown]
